FAERS Safety Report 6774715-4 (Version None)
Quarter: 2010Q2

REPORT INFORMATION
  Report Type: 
  Country: None (occurrence: None)
  Receive Date: 20100617
  Receipt Date: 20100609
  Transmission Date: 20101027
  Serious: Yes (Other)
  Sender: FDA-Public Use
  Company Number: FR-ROCHE-708739

PATIENT
  Sex: Male
  Weight: 2.4 kg

DRUGS (4)
  1. TAMIFLU [Suspect]
     Route: 064
     Dates: start: 20091212, end: 20091214
  2. DOLIPRANE [Suspect]
     Indication: DRUG USE FOR UNKNOWN INDICATION
     Route: 064
     Dates: start: 20091212, end: 20091214
  3. RANITIDINE HCL [Concomitant]
  4. FORLAX [Concomitant]

REACTIONS (1)
  - FOETAL GROWTH RETARDATION [None]
